FAERS Safety Report 8189149-8 (Version None)
Quarter: 2012Q1

REPORT INFORMATION
  Report Type: 
  Country: None (occurrence: None)
  Receive Date: 20120306
  Receipt Date: 20120306
  Transmission Date: 20120608
  Serious: Yes (Hospitalization, Other)
  Sender: FDA-Public Use
  Company Number: None

PATIENT
  Age: 71 Year
  Sex: Male
  Weight: 94.3482 kg

DRUGS (1)
  1. JANUMET [Suspect]
     Indication: GLUCOSE TOLERANCE IMPAIRED
     Dosage: 50-500MG TWICE A DAY
     Dates: start: 20090101, end: 20110101

REACTIONS (11)
  - WEIGHT DECREASED [None]
  - CHOLELITHIASIS [None]
  - HYPOPHAGIA [None]
  - DIARRHOEA [None]
  - PERIPHERAL COLDNESS [None]
  - HYPERHIDROSIS [None]
  - ABDOMINAL PAIN UPPER [None]
  - DIZZINESS [None]
  - DYSPNOEA [None]
  - BACK PAIN [None]
  - GASTRIC DISORDER [None]
